FAERS Safety Report 13689900 (Version 1)
Quarter: 2017Q2

REPORT INFORMATION
  Report Type: Spontaneous
  Country: US (occurrence: US)
  Receive Date: 20170626
  Receipt Date: 20170626
  Transmission Date: 20170830
  Serious: Yes (Other)
  Sender: FDA-Public Use
  Company Number: US-CELGENEUS-USA-20170605922

PATIENT

DRUGS (1)
  1. ABRAXANE [Suspect]
     Active Substance: PACLITAXEL
     Indication: LYMPHOMA
     Route: 065

REACTIONS (26)
  - Syncope [Unknown]
  - Platelet count decreased [Unknown]
  - Pyrexia [Unknown]
  - Anaemia [Unknown]
  - Cellulitis [Unknown]
  - Hypocalcaemia [Unknown]
  - Hypoalbuminaemia [Unknown]
  - Lymphocyte count decreased [Unknown]
  - Lymphoma [Unknown]
  - Dyspnoea [Unknown]
  - Peripheral sensory neuropathy [Unknown]
  - Cough [Unknown]
  - Progressive multifocal leukoencephalopathy [Unknown]
  - Influenza [Unknown]
  - Skin infection [Unknown]
  - White blood cell count decreased [Unknown]
  - Fatigue [Unknown]
  - Blood alkaline phosphatase increased [Unknown]
  - Muscular weakness [Unknown]
  - Infection [Unknown]
  - Candida infection [Unknown]
  - Oedema peripheral [Unknown]
  - Neutrophil count decreased [Unknown]
  - Stomatitis [Unknown]
  - Dysphagia [Unknown]
  - Nausea [Unknown]
